FAERS Safety Report 25290689 (Version 1)
Quarter: 2025Q2

REPORT INFORMATION
  Report Type: Spontaneous
  Country: US (occurrence: US)
  Receive Date: 20250510
  Receipt Date: 20250510
  Transmission Date: 20250717
  Serious: No
  Sender: BRISTOL-MYERS SQUIBB COMPANY
  Company Number: US-BRISTOL-MYERS SQUIBB COMPANY-2025-067639

PATIENT
  Age: 86 Year
  Sex: Female

DRUGS (4)
  1. POMALYST [Suspect]
     Active Substance: POMALIDOMIDE
     Indication: Plasma cell myeloma
     Route: 048
     Dates: start: 20250314
  2. POMALYST [Suspect]
     Active Substance: POMALIDOMIDE
  3. DEXAMETHASONE [Suspect]
     Active Substance: DEXAMETHASONE
     Indication: Product used for unknown indication
  4. CARFILZOMIB [Suspect]
     Active Substance: CARFILZOMIB
     Indication: Product used for unknown indication

REACTIONS (16)
  - Influenza like illness [Unknown]
  - Fatigue [Unknown]
  - Malaise [Unknown]
  - Feeling abnormal [Unknown]
  - Pollakiuria [Unknown]
  - Peripheral coldness [Unknown]
  - Irregular sleep phase [Unknown]
  - Oropharyngeal pain [Unknown]
  - Blood glucose decreased [Unknown]
  - Tremor [Unknown]
  - Rash [Unknown]
  - Diarrhoea [Unknown]
  - Weight increased [Unknown]
  - Blood pressure increased [Unknown]
  - Renal disorder [Unknown]
  - Epistaxis [Unknown]
